FAERS Safety Report 9596832 (Version 2)
Quarter: 2013Q4

REPORT INFORMATION
  Report Type: Report from Study
  Country: NL (occurrence: NL)
  Receive Date: 20131004
  Receipt Date: 20131004
  Transmission Date: 20140711
  Serious: Yes (Death, Life-Threatening)
  Sender: FDA-Public Use
  Company Number: NL-CELGENEUS-114-21880-13082996

PATIENT
  Sex: Male
  Weight: 96 kg

DRUGS (6)
  1. REVLIMID [Suspect]
     Indication: PRODUCT USED FOR UNKNOWN INDICATION
     Route: 048
     Dates: start: 20130801, end: 20130820
  2. DAUNOMYCIN [Suspect]
     Indication: PRODUCT USED FOR UNKNOWN INDICATION
     Route: 041
     Dates: start: 20130801, end: 20130803
  3. CYTARABINE [Suspect]
     Indication: PRODUCT USED FOR UNKNOWN INDICATION
     Route: 041
     Dates: start: 20130801, end: 20130807
  4. AMPHOTERICIN B [Concomitant]
     Indication: CANDIDA INFECTION
     Dosage: 2000 MILLIGRAM
     Route: 048
     Dates: start: 20130816, end: 20130820
  5. PIPERACILIN/TAZOBACTAM [Concomitant]
     Indication: INFECTION
     Dosage: 4000/500
     Route: 041
     Dates: start: 20130810, end: 20130820
  6. CIPROXIN [Concomitant]
     Indication: PROPHYLAXIS
     Dosage: 1000 MILLIGRAM
     Route: 048
     Dates: start: 20130731, end: 20130820

REACTIONS (1)
  - Respiratory failure [Fatal]
